FAERS Safety Report 22210464 (Version 1)
Quarter: 2023Q2

REPORT INFORMATION
  Report Type: Report from Study
  Country: TW (occurrence: TW)
  Receive Date: 20230414
  Receipt Date: 20230414
  Transmission Date: 20230721
  Serious: Yes (Other)
  Sender: FDA-Public Use
  Company Number: TW-002147023-NVSC2023TW082572

PATIENT
  Sex: Female

DRUGS (2)
  1. COSENTYX [Suspect]
     Active Substance: SECUKINUMAB
     Indication: Ankylosing spondylitis
     Dosage: 150 MG, QMO (Q4W)
     Route: 058
  2. FLURBIPROFEN [Concomitant]
     Active Substance: FLURBIPROFEN
     Indication: Product used for unknown indication
     Dosage: 40 MG, QD (ONCE DAILY)
     Route: 061

REACTIONS (3)
  - Gastric ulcer [Unknown]
  - Gastrointestinal inflammation [Unknown]
  - Colitis [Unknown]
